FAERS Safety Report 15309155 (Version 2)
Quarter: 2020Q2

REPORT INFORMATION
  Report Type: Spontaneous
  Country: US (occurrence: US)
  Receive Date: 20180823
  Receipt Date: 20200618
  Transmission Date: 20200713
  Serious: No
  Sender: FDA-Public Use
  Company Number: US-BIOGEN-2018BI00621902

PATIENT
  Age: 30 Year
  Sex: Female

DRUGS (1)
  1. TYSABRI [Suspect]
     Active Substance: NATALIZUMAB
     Indication: MULTIPLE SCLEROSIS
     Dosage: INFUSED FOR OVER 1 HOUR
     Route: 050
     Dates: start: 20160620

REACTIONS (10)
  - Pain in extremity [Unknown]
  - Insomnia [Unknown]
  - Muscle twitching [Unknown]
  - Product dose omission [Unknown]
  - Micturition disorder [Unknown]
  - Withdrawal syndrome [Unknown]
  - Pain [Unknown]
  - Arthralgia [Unknown]
  - Memory impairment [Unknown]
  - Headache [Unknown]

NARRATIVE: CASE EVENT DATE: 20180501
